FAERS Safety Report 24642196 (Version 1)
Quarter: 2024Q4

REPORT INFORMATION
  Report Type: Spontaneous
  Country: US (occurrence: None)
  Receive Date: 20241119
  Receipt Date: 20241119
  Transmission Date: 20250114
  Serious: Yes (unspecified)
  Sender: Public
  Company Number: None

PATIENT
  Age: 38 Year
  Sex: Female
  Weight: 96.2 kg

DRUGS (1)
  1. OCREVUS [Suspect]
     Active Substance: OCRELIZUMAB
     Indication: Multiple sclerosis

REACTIONS (5)
  - Infusion related reaction [None]
  - Urticaria [None]
  - Dyspnoea [None]
  - Throat irritation [None]
  - Pharyngeal paraesthesia [None]

NARRATIVE: CASE EVENT DATE: 20241115
